FAERS Safety Report 8494418-8 (Version None)
Quarter: 2012Q3

REPORT INFORMATION
  Report Type: 
  Country: None (occurrence: None)
  Receive Date: 20120709
  Receipt Date: 20120517
  Transmission Date: 20120928
  Serious: Yes (Other)
  Sender: FDA-Public Use
  Company Number: TR-JNJFOC-20120614379

PATIENT
  Age: 14 Year
  Sex: Female

DRUGS (1)
  1. SUDAFED 12 HOUR [Suspect]
     Indication: COUGH
     Dosage: ONCE USED BETWEEN 1999 AND 2003
     Route: 048
     Dates: start: 19990101, end: 20030101

REACTIONS (2)
  - AGGRESSION [None]
  - HALLUCINATION [None]
